FAERS Safety Report 9640465 (Version 1)
Quarter: 2013Q4

REPORT INFORMATION
  Report Type: Spontaneous
  Country: US (occurrence: US)
  Receive Date: 20131023
  Receipt Date: 20131023
  Transmission Date: 20140711
  Serious: No
  Sender: FDA-Public Use
  Company Number: US-ABBVIE-13P-163-1054175-00

PATIENT
  Age: 20 Year
  Sex: Female

DRUGS (2)
  1. LUPRON DEPOT [Suspect]
     Indication: PRODUCT USED FOR UNKNOWN INDICATION
  2. NORETHINDRONE ACETATE [Concomitant]
     Indication: OESTROGEN THERAPY

REACTIONS (1)
  - Muscle spasms [Unknown]
